FAERS Safety Report 6382306-2 (Version None)
Quarter: 2009Q3

REPORT INFORMATION
  Report Type: 
  Country: None (occurrence: None)
  Receive Date: 20090930
  Receipt Date: 20090922
  Transmission Date: 20100115
  Serious: Yes (Other)
  Sender: FDA-Public Use
  Company Number: US-JNJCH-2009025616

PATIENT
  Age: 39 Year
  Sex: Female

DRUGS (1)
  1. NEOSPORIN [Suspect]
     Indication: IMPETIGO
     Dosage: TEXT:UNSPECIFIED
     Route: 061

REACTIONS (2)
  - DERMATITIS [None]
  - OFF LABEL USE [None]
